FAERS Safety Report 7375227-X (Version None)
Quarter: 2011Q1

REPORT INFORMATION
  Report Type: 
  Country: None (occurrence: None)
  Receive Date: 20110315
  Receipt Date: 20110224
  Transmission Date: 20110831
  Serious: Yes (Death)
  Sender: FDA-Public Use
  Company Number: 100115365-AKO-5052

PATIENT
  Age: 72 Year
  Sex: Male

DRUGS (2)
  1. VANCOMYCIN HCL [Suspect]
     Indication: INFECTION
     Dosage: 1 GM OT, IV
     Route: 042
     Dates: start: 20110216, end: 20110216
  2. ACETAMINOPHEN [Concomitant]

REACTIONS (2)
  - CARDIO-RESPIRATORY ARREST [None]
  - HYPOTENSION [None]
